FAERS Safety Report 24938299 (Version 2)
Quarter: 2025Q1

REPORT INFORMATION
  Report Type: Spontaneous
  Country: JP (occurrence: JP)
  Receive Date: 20250206
  Receipt Date: 20250225
  Transmission Date: 20250409
  Serious: No
  Sender: UCB
  Company Number: JP-UCBJ-CD202501587UCBPHAPROD

PATIENT
  Age: 7 Year
  Sex: Male
  Weight: 33.4 kg

DRUGS (2)
  1. VIMPAT [Suspect]
     Active Substance: LACOSAMIDE
     Indication: Seizure
     Route: 048
  2. LEVETIRACETAM [Suspect]
     Active Substance: LEVETIRACETAM
     Indication: Seizure
     Route: 048

REACTIONS (1)
  - Drug ineffective [Unknown]
